FAERS Safety Report 6538148-8 (Version None)
Quarter: 2010Q1

REPORT INFORMATION
  Report Type: 
  Country: None (occurrence: None)
  Receive Date: 20100111
  Receipt Date: 20091231
  Transmission Date: 20100710
  Serious: Yes (Death, Hospitalization)
  Sender: FDA-Public Use
  Company Number: A-US2009-32861

PATIENT
  Age: 21 Year
  Sex: Female

DRUGS (1)
  1. VENTAVIS [Suspect]
     Indication: PULMONARY ARTERIAL HYPERTENSION
     Dosage: 2.5 UG, RESPIRATORY
     Route: 055
     Dates: start: 20091119, end: 20091229

REACTIONS (2)
  - ASTHMA [None]
  - CARDIOPULMONARY FAILURE [None]
